FAERS Safety Report 17399696 (Version 1)
Quarter: 2020Q1

REPORT INFORMATION
  Report Type: Spontaneous
  Country: CN (occurrence: CN)
  Receive Date: 20200211
  Receipt Date: 20200211
  Transmission Date: 20200409
  Serious: Yes (Hospitalization)
  Sender: FDA-Public Use
  Company Number: CN-B.I. PHARMACEUTICALS,INC./RIDGEFIELD-2020-BI-006953

PATIENT
  Sex: Female
  Weight: 60 kg

DRUGS (1)
  1. GILOTRIF [Suspect]
     Active Substance: AFATINIB
     Indication: DRUG THERAPY
     Route: 048
     Dates: start: 20191011, end: 20191019

REACTIONS (4)
  - Rash [Recovering/Resolving]
  - Palmar-plantar erythrodysaesthesia syndrome [Recovering/Resolving]
  - Diarrhoea [Recovering/Resolving]
  - Oral disorder [Recovering/Resolving]

NARRATIVE: CASE EVENT DATE: 20191013
